FAERS Safety Report 23184399 (Version 1)
Quarter: 2023Q4

REPORT INFORMATION
  Report Type: Report from Study
  Country: US (occurrence: US)
  Receive Date: 20231115
  Receipt Date: 20231115
  Transmission Date: 20240110
  Serious: Yes (Other)
  Sender: FDA-Public Use
  Company Number: US-SA-SAC20231109000248

PATIENT
  Age: 53 Year
  Sex: Male

DRUGS (1)
  1. AGALSIDASE BETA [Suspect]
     Active Substance: AGALSIDASE BETA
     Indication: Fabry^s disease
     Dosage: 90 (UNITS NOT PROVIDED)
     Route: 042
     Dates: start: 20030814

REACTIONS (2)
  - Renal impairment [Not Recovered/Not Resolved]
  - Protein total increased [Not Recovered/Not Resolved]

NARRATIVE: CASE EVENT DATE: 20230101
